FAERS Safety Report 14921786 (Version 1)
Quarter: 2018Q2

REPORT INFORMATION
  Report Type: Spontaneous
  Country: FR (occurrence: FR)
  Receive Date: 20180522
  Receipt Date: 20180522
  Transmission Date: 20180711
  Serious: Yes (Other)
  Sender: FDA-Public Use
  Company Number: FR-MERCK KGAA-2048197

PATIENT
  Age: 41 Year
  Sex: Male

DRUGS (1)
  1. NOVOTHYROX [Suspect]
     Active Substance: LEVOTHYROXINE SODIUM
     Indication: PRODUCT USED FOR UNKNOWN INDICATION

REACTIONS (10)
  - Anger [None]
  - Irritability [None]
  - Anti-thyroid antibody positive [None]
  - Eosinophil count increased [None]
  - Feeling abnormal [None]
  - Fatigue [None]
  - Impaired work ability [None]
  - Decreased activity [None]
  - Sleep disorder [None]
  - Marital problem [None]

NARRATIVE: CASE EVENT DATE: 20170107
